FAERS Safety Report 17247780 (Version 1)
Quarter: 2020Q1

REPORT INFORMATION
  Report Type: Spontaneous
  Country: IT (occurrence: IT)
  Receive Date: 20200108
  Receipt Date: 20200108
  Transmission Date: 20200409
  Serious: Yes (Death)
  Sender: FDA-Public Use
  Company Number: IT-ASTRAZENECA-2020SE03159

PATIENT
  Age: 64 Year
  Sex: Male
  Weight: 100 kg

DRUGS (1)
  1. IMFINZI [Suspect]
     Active Substance: DURVALUMAB
     Indication: LUNG NEOPLASM
     Dosage: 1000.0MG EVERY CYCLE
     Route: 041
     Dates: start: 20191209, end: 20191209

REACTIONS (4)
  - Asthenia [Fatal]
  - Respiratory distress [Fatal]
  - Hypoxia [Fatal]
  - Dyspnoea exertional [Fatal]

NARRATIVE: CASE EVENT DATE: 20191223
